FAERS Safety Report 8900812 (Version 1)
Quarter: 2012Q4

REPORT INFORMATION
  Report Type: 
  Country: CA (occurrence: CA)
  Receive Date: 20121109
  Receipt Date: 20121109
  Transmission Date: 20130627
  Serious: Yes (Death, Other)
  Sender: FDA-Public Use
  Company Number: PHMT2007CA00469

PATIENT
  Sex: Female

DRUGS (3)
  1. SANDOSTATIN LAR [Suspect]
     Indication: METASTASIS
     Dosage: 40 mg, every 3 weeks
     Dates: start: 20030701, end: 20061224
  2. ALTACE [Concomitant]
  3. METOPROLOL [Concomitant]

REACTIONS (15)
  - Death [Fatal]
  - Thrombosis [Unknown]
  - Blood pressure increased [Unknown]
  - Fatigue [Unknown]
  - Agitation [Unknown]
  - Restlessness [Unknown]
  - Arthralgia [Unknown]
  - Oedema peripheral [Unknown]
  - Blister [Unknown]
  - Wound secretion [Unknown]
  - Dyspnoea exertional [Unknown]
  - Confusional state [Unknown]
  - Malaise [Unknown]
  - Heart rate increased [Unknown]
  - Nausea [Unknown]
